FAERS Safety Report 25289201 (Version 1)
Quarter: 2025Q2

REPORT INFORMATION
  Report Type: Report from Study
  Country: DE (occurrence: DE)
  Receive Date: 20250509
  Receipt Date: 20250509
  Transmission Date: 20250717
  Serious: Yes (Other)
  Sender: SANDOZ
  Company Number: DE-SANDOZ-SDZ2025DE029944

PATIENT
  Sex: Male
  Weight: 51.2 kg

DRUGS (1)
  1. SOMATROPIN [Suspect]
     Active Substance: SOMATROPIN
     Indication: Growth hormone deficiency
     Dosage: 1.2 MG, QD
     Route: 058
     Dates: start: 20201111

REACTIONS (3)
  - Poor peripheral circulation [Recovered/Resolved]
  - Livedo reticularis [Recovered/Resolved]
  - Cyanosis [Recovered/Resolved]

NARRATIVE: CASE EVENT DATE: 20250330
